FAERS Safety Report 7201876-5 (Version None)
Quarter: 2010Q4

REPORT INFORMATION
  Report Type: 
  Country: None (occurrence: None)
  Receive Date: 20101215
  Receipt Date: 20101130
  Transmission Date: 20110411
  Serious: Yes (Other)
  Sender: FDA-Public Use
  Company Number: JPI-P-013110

PATIENT
  Age: 52 Year
  Sex: Female
  Weight: 49.8957 kg

DRUGS (1)
  1. XYREM [Suspect]
     Indication: NARCOLEPSY
     Dosage: ORAL ; 7.5 GM (3.75 GM,2 IN 1 D),ORAL
     Route: 048
     Dates: start: 20041001

REACTIONS (5)
  - ACCIDENT AT WORK [None]
  - NECK INJURY [None]
  - POST PROCEDURAL HAEMATOMA [None]
  - PROCEDURAL PAIN [None]
  - ROTATOR CUFF SYNDROME [None]
